FAERS Safety Report 4569952-3 (Version None)
Quarter: 2005Q1

REPORT INFORMATION
  Report Type: 
  Country: None (occurrence: None)
  Receive Date: 20050204
  Receipt Date: 20050124
  Transmission Date: 20050727
  Serious: Yes (Other)
  Sender: FDA-Public Use
  Company Number: US-JNJFOC-20041003450

PATIENT
  Sex: Male
  Weight: 78.02 kg

DRUGS (3)
  1. REMICADE [Suspect]
     Indication: RHEUMATOID ARTHRITIS
     Route: 042
  2. TYLENOL [Concomitant]
  3. VIOXX [Concomitant]

REACTIONS (3)
  - AMNESIA [None]
  - CEREBRAL ISCHAEMIA [None]
  - MYOCARDIAL INFARCTION [None]
